FAERS Safety Report 11734646 (Version 1)
Quarter: 2015Q4

REPORT INFORMATION
  Report Type: Spontaneous
  Country: KR (occurrence: KR)
  Receive Date: 20151113
  Receipt Date: 20151113
  Transmission Date: 20160304
  Serious: Yes (Other)
  Sender: FDA-Public Use
  Company Number: KR-AMGEN-KORSP2015120181

PATIENT

DRUGS (1)
  1. NESP [Suspect]
     Active Substance: DARBEPOETIN ALFA
     Indication: ANAEMIA
     Dosage: 50 MUG, Q2WK
     Route: 058

REACTIONS (4)
  - Acute kidney injury [Unknown]
  - Headache [Unknown]
  - Hyperkalaemia [Unknown]
  - Hypertension [Unknown]
